FAERS Safety Report 13936002 (Version 1)
Quarter: 2017Q3

REPORT INFORMATION
  Report Type: Spontaneous
  Country: CH (occurrence: CH)
  Receive Date: 20170905
  Receipt Date: 20170905
  Transmission Date: 20171127
  Serious: Yes (Hospitalization)
  Sender: FDA-Public Use
  Company Number: CH-UCBSA-2017034176

PATIENT
  Age: 28 Year
  Sex: Male
  Weight: 80 kg

DRUGS (2)
  1. VIMPAT [Suspect]
     Active Substance: LACOSAMIDE
     Indication: EPILEPSY
     Dosage: 50 MG, UNK
     Route: 048
     Dates: start: 20170809, end: 20170809
  2. VALPROATE [Interacting]
     Active Substance: VALPROIC ACID
     Indication: EPILEPSY
     Dosage: 1500 MG PER DAY
     Route: 048

REACTIONS (2)
  - Potentiating drug interaction [Recovered/Resolved]
  - Sinus node dysfunction [Recovered/Resolved]

NARRATIVE: CASE EVENT DATE: 20170809
